FAERS Safety Report 14205972 (Version 1)
Quarter: 2017Q4

REPORT INFORMATION
  Report Type: Report from Study
  Country: US (occurrence: US)
  Receive Date: 20171120
  Receipt Date: 20171120
  Transmission Date: 20180321
  Serious: Yes (Hospitalization, Other)
  Sender: FDA-Public Use
  Company Number: US-BAYER-2017-191237

PATIENT
  Age: 69 Year
  Sex: Female

DRUGS (4)
  1. STIVARGA [Suspect]
     Active Substance: REGORAFENIB
     Indication: RECTOSIGMOID CANCER
     Dosage: 120 MG DAILY DOSE
     Route: 048
     Dates: start: 20170929, end: 2017
  2. STIVARGA [Suspect]
     Active Substance: REGORAFENIB
     Indication: RECTOSIGMOID CANCER
     Dosage: 80 MG DAILY DOSE
     Route: 048
     Dates: start: 20170915, end: 201709
  3. STIVARGA [Suspect]
     Active Substance: REGORAFENIB
     Indication: RECTOSIGMOID CANCER
     Dosage: 160 MG DAILY DOSE
     Route: 048
     Dates: start: 201710, end: 20171031
  4. STIVARGA [Suspect]
     Active Substance: REGORAFENIB
     Indication: RECTOSIGMOID CANCER
     Dosage: 120 MG, QD
     Route: 048
     Dates: start: 201709, end: 20170925

REACTIONS (10)
  - Urinary tract infection [Recovered/Resolved]
  - Hyperkeratosis [Not Recovered/Not Resolved]
  - Fatigue [Not Recovered/Not Resolved]
  - Pyrexia [Recovered/Resolved]
  - Mental impairment [Recovering/Resolving]
  - Gait inability [Recovered/Resolved]
  - Pre-existing condition improved [Not Recovered/Not Resolved]
  - Blister [Not Recovered/Not Resolved]
  - Off label use [None]
  - Pain in extremity [Recovered/Resolved]

NARRATIVE: CASE EVENT DATE: 2017
